FAERS Safety Report 5615103-3 (Version None)
Quarter: 2008Q1

REPORT INFORMATION
  Report Type: 
  Country: None (occurrence: None)
  Receive Date: 20080206
  Receipt Date: 20070501
  Transmission Date: 20080703
  Serious: No
  Sender: FDA-Public Use
  Company Number: A0649551A

PATIENT

DRUGS (1)
  1. ARIXTRA [Suspect]
     Indication: HIP SURGERY
     Route: 065

REACTIONS (1)
  - HAEMATOCRIT DECREASED [None]
